FAERS Safety Report 6686776-1 (Version None)
Quarter: 2010Q2

REPORT INFORMATION
  Report Type: 
  Country: None (occurrence: None)
  Receive Date: 20100419
  Receipt Date: 20100407
  Transmission Date: 20101027
  Serious: Yes (Other)
  Sender: FDA-Public Use
  Company Number: FR-WYE-H14619710

PATIENT
  Age: 62 Year
  Sex: Male

DRUGS (11)
  1. AMIODARONE [Suspect]
     Indication: DRUG USE FOR UNKNOWN INDICATION
     Route: 048
  2. PREVISCAN [Interacting]
     Indication: DRUG USE FOR UNKNOWN INDICATION
     Route: 048
     Dates: start: 20070101, end: 20100210
  3. PREVISCAN [Interacting]
     Dosage: DOSE UNKNOWN
     Route: 048
     Dates: start: 20100211
  4. NOVONORM [Concomitant]
     Dosage: DOSE UNKNOWN
     Route: 065
  5. INSULIN DETEMIR [Concomitant]
     Dosage: DOSE UNKNOWN
     Route: 065
  6. ADANCOR [Concomitant]
     Dosage: DOSE UNKNOWN
     Route: 065
  7. TAHOR [Concomitant]
     Dosage: DOSE UNKNOWN
     Route: 065
  8. CARDENSIEL [Concomitant]
     Dosage: DOSE UNKNOWN
     Route: 065
  9. COVERSYL [Concomitant]
     Dosage: DOSE UNKNOWN
     Route: 065
  10. DOLIPRANE [Interacting]
     Indication: MIGRAINE
     Route: 048
     Dates: start: 20100209, end: 20100209
  11. KARDEGIC [Concomitant]
     Dosage: DOSE UNKNOWN
     Route: 065

REACTIONS (2)
  - DRUG INTERACTION [None]
  - INTERNATIONAL NORMALISED RATIO INCREASED [None]
